FAERS Safety Report 6119892-3 (Version None)
Quarter: 2009Q1

REPORT INFORMATION
  Report Type: 
  Country: None (occurrence: None)
  Receive Date: 20090316
  Receipt Date: 20090303
  Transmission Date: 20090719
  Serious: Yes (Other)
  Sender: FDA-Public Use
  Company Number: DE-TEVA-186977ISR

PATIENT
  Age: 60 Year
  Sex: Male

DRUGS (2)
  1. AMANTADINE HCL [Suspect]
     Indication: LISTLESS
     Dates: start: 20081125, end: 20081209
  2. CITALOPRAM HYDROBROMIDE [Suspect]
     Indication: ANXIETY DISORDER
     Route: 048
     Dates: start: 20081126, end: 20081209

REACTIONS (1)
  - THROMBOCYTOPENIA [None]
